FAERS Safety Report 5570107-4 (Version None)
Quarter: 2007Q4

REPORT INFORMATION
  Report Type: 
  Country: None (occurrence: None)
  Receive Date: 20071217
  Receipt Date: 20071130
  Transmission Date: 20080405
  Serious: Yes (Death)
  Sender: FDA-Public Use
  Company Number: 8028300

PATIENT
  Sex: Male
  Weight: 92 kg

DRUGS (5)
  1. KEPPRA [Suspect]
     Indication: EPILEPSY
     Dosage: 1000 MG 2/D PO
     Route: 048
     Dates: end: 20071122
  2. FUROSEMIDE [Concomitant]
  3. OXCARBAZEPINE [Concomitant]
  4. RANITIDINE HCL [Concomitant]
  5. QUINAPRIL HCL [Concomitant]

REACTIONS (2)
  - JEJUNOSTOMY [None]
  - OESOPHAGEAL CARCINOMA [None]
